FAERS Safety Report 8776082 (Version 1)
Quarter: 2012Q4

REPORT INFORMATION
  Report Type: 
  Country: ES (occurrence: ES)
  Receive Date: 20120910
  Receipt Date: 20120910
  Transmission Date: 20130627
  Serious: Yes (Death)
  Sender: FDA-Public Use
  Company Number: ES-MYLANLABS-2012S1017817

PATIENT
  Age: 59 Year
  Sex: Female

DRUGS (3)
  1. FLUOROURACIL [Suspect]
     Dosage: FOLFOX
     Route: 065
  2. FOLINIC ACID [Concomitant]
     Dosage: FOLFOX
     Route: 065
  3. OXALIPLATIN [Concomitant]
     Dosage: FOLFOX
     Route: 065

REACTIONS (3)
  - Hyperammonaemic encephalopathy [Fatal]
  - Coma [Unknown]
  - Brain oedema [None]
